FAERS Safety Report 4440790-5 (Version None)
Quarter: 2004Q3

REPORT INFORMATION
  Report Type: 
  Country: None (occurrence: None)
  Receive Date: 20040901
  Receipt Date: 20040817
  Transmission Date: 20050211
  Serious: Yes (Hospitalization)
  Sender: FDA-Public Use
  Company Number: 8-99253-001X

PATIENT
  Age: 56 Year
  Sex: Male

DRUGS (4)
  1. REFACTO [Suspect]
     Indication: FACTOR VIII DEFICIENCY
     Dosage: SEE IMAGE
     Route: 042
     Dates: start: 19940308, end: 19940308
  2. REFACTO [Suspect]
     Indication: FACTOR VIII DEFICIENCY
     Dosage: SEE IMAGE
     Route: 042
     Dates: start: 19980403, end: 19980403
  3. ATENOLOL [Concomitant]
  4. NIFEDIPINE [Concomitant]

REACTIONS (2)
  - DRUG SPECIFIC ANTIBODY PRESENT [None]
  - HAEMATOMA [None]
